FAERS Safety Report 19901290 (Version 1)
Quarter: 2021Q3

REPORT INFORMATION
  Report Type: Spontaneous
  Country: CN (occurrence: CN)
  Receive Date: 20210930
  Receipt Date: 20210930
  Transmission Date: 20211014
  Serious: Yes (Hospitalization, Other)
  Sender: FDA-Public Use
  Company Number: CN-PFIZER INC-202101256959

PATIENT
  Age: 50 Year
  Sex: Female

DRUGS (1)
  1. DIFLUCAN [Suspect]
     Active Substance: FLUCONAZOLE
     Indication: PNEUMONIA CRYPTOCOCCAL
     Dosage: 400 MG, ONCE DAILY

REACTIONS (4)
  - Off label use [Unknown]
  - Hypopituitarism [Unknown]
  - Mouth ulceration [Unknown]
  - Secondary hypogonadism [Unknown]
